FAERS Safety Report 24042880 (Version 1)
Quarter: 2024Q3

REPORT INFORMATION
  Report Type: Spontaneous
  Country: DE (occurrence: DE)
  Receive Date: 20240702
  Receipt Date: 20240702
  Transmission Date: 20241016
  Serious: Yes (Hospitalization)
  Sender: SANDOZ
  Company Number: DE-ROCHE-3558321

PATIENT
  Age: 45 Year
  Sex: Female
  Weight: 86 kg

DRUGS (25)
  1. ACTEMRA [Suspect]
     Active Substance: TOCILIZUMAB
     Indication: Diffuse large B-cell lymphoma
     Dosage: UNK
     Route: 042
  2. CYCLOPHOSPHAMIDE [Suspect]
     Active Substance: CYCLOPHOSPHAMIDE
     Dosage: START DATE OF MOST RECENT DOSE OF STUDY DRUG PRIOR TO AE/SAE 17-APR-2024, 1440MG.
     Route: 042
     Dates: start: 20240328
  3. CYCLOPHOSPHAMIDE [Suspect]
     Active Substance: CYCLOPHOSPHAMIDE
     Indication: Diffuse large B-cell lymphoma
     Dosage: C1D2, AS PER PROTOCOL
     Route: 042
     Dates: start: 20240328
  4. CYCLOPHOSPHAMIDE [Suspect]
     Active Substance: CYCLOPHOSPHAMIDE
     Dosage: C2D1
     Route: 042
     Dates: start: 20240418
  5. COLUMVI [Suspect]
     Active Substance: GLOFITAMAB-GXBM
     Indication: Diffuse large B-cell lymphoma
     Dosage: C2D8, AS PER PROTOCOL
     Route: 042
     Dates: start: 20240425
  6. COLUMVI [Suspect]
     Active Substance: GLOFITAMAB-GXBM
     Dosage: START DATE OF MOST RECENT DOSE OF STUDY DRUG PRIOR TO AE/SAE, 25-APR-2024 2.5MG
     Route: 042
  7. DOXORUBICIN [Suspect]
     Active Substance: DOXORUBICIN
     Indication: Diffuse large B-cell lymphoma
     Dosage: C1D2, AS PER PROTOCOL
     Route: 042
     Dates: start: 20240328
  8. DOXORUBICIN [Suspect]
     Active Substance: DOXORUBICIN
     Dosage: 17-APR-2024, START DATE OF MOST RECENT DOSE OF STUDY DRUGPRIOR TO AE/SAE, 96MG
     Route: 042
     Dates: start: 20240328
  9. DOXORUBICIN [Suspect]
     Active Substance: DOXORUBICIN
     Dosage: C2D1
     Route: 042
     Dates: start: 20240418
  10. PREDNISONE [Suspect]
     Active Substance: PREDNISONE
     Dosage: 100 MG, TIW, (UNKNOWN (NOS)
     Route: 048
     Dates: start: 20240328
  11. PREDNISONE [Suspect]
     Active Substance: PREDNISONE
     Indication: Diffuse large B-cell lymphoma
     Dosage: C2D1, AS PER PROTOCOL
     Route: 048
     Dates: start: 20240418
  12. PREDNISONE [Suspect]
     Active Substance: PREDNISONE
     Dosage: START DATE OF MOST RECENT DOSE OF STUDY DRUGPRIOR TO AE/SAE 21/APR/2024
     Route: 048
  13. POLATUZUMAB VEDOTIN [Suspect]
     Active Substance: POLATUZUMAB VEDOTIN
     Dosage: AS PER START DATE OF MOST RECENT DOSE OF STUDY DRUGPRIOR TO AE/SAE , 154.8MG. 17/APR/2024
     Route: 042
     Dates: start: 20240328
  14. POLATUZUMAB VEDOTIN [Suspect]
     Active Substance: POLATUZUMAB VEDOTIN
     Dosage: AS PER PROTOCOL
     Route: 042
     Dates: start: 20240328
  15. POLATUZUMAB VEDOTIN [Suspect]
     Active Substance: POLATUZUMAB VEDOTIN
     Indication: Diffuse large B-cell lymphoma
     Dosage: C2D1
     Route: 042
     Dates: start: 20240418
  16. RITUXIMAB [Suspect]
     Active Substance: RITUXIMAB
     Dosage: START DATE OF MOST RECENT DOSE OF STUDY DRUGPRIOR TO AE/SAE, 17-APR-2024, 720MG
     Route: 042
     Dates: start: 20240328
  17. RITUXIMAB [Suspect]
     Active Substance: RITUXIMAB
     Dosage: C1D1 AS PER PROTOCOL
     Route: 042
     Dates: start: 20240328
  18. RITUXIMAB [Suspect]
     Active Substance: RITUXIMAB
     Indication: Diffuse large B-cell lymphoma
     Dosage: C2D1
     Route: 042
     Dates: start: 20240418
  19. SULFAMETHOXAZOLE\TRIMETHOPRIM [Concomitant]
     Active Substance: SULFAMETHOXAZOLE\TRIMETHOPRIM
     Indication: Product used for unknown indication
     Dosage: 960 MG
     Route: 048
     Dates: start: 20240401
  20. METAMIZOL [Concomitant]
     Active Substance: METAMIZOLE SODIUM
     Indication: Pain
     Dosage: 1 G
     Route: 048
     Dates: start: 20240304
  21. METOPROLOL [Concomitant]
     Active Substance: METOPROLOL
     Indication: Sinus tachycardia
     Dosage: 47.5 MG
     Route: 048
     Dates: start: 20240304
  22. PANTOPRAZOLE SODIUM [Concomitant]
     Active Substance: PANTOPRAZOLE SODIUM
     Indication: Product used for unknown indication
     Dosage: GIVEN FOR PROPHYLAXIS IS YES
     Route: 048
     Dates: start: 20240305
  23. SERTRALINE HYDROCHLORIDE [Concomitant]
     Active Substance: SERTRALINE HYDROCHLORIDE
     Indication: Anxiety
     Dosage: 125 MG, QD
     Route: 048
     Dates: start: 20240305
  24. TORSEMIDE [Concomitant]
     Active Substance: TORSEMIDE
     Indication: Sternotomy
     Dosage: GIVEN FOR PROPHYLAXIS IS YES
     Route: 048
     Dates: start: 20240305
  25. VALACYCLOVIR HYDROCHLORIDE [Concomitant]
     Active Substance: VALACYCLOVIR HYDROCHLORIDE
     Indication: Product used for unknown indication
     Dosage: 500 MG
     Route: 048
     Dates: start: 20240328

REACTIONS (1)
  - Pneumonia [Recovered/Resolved]

NARRATIVE: CASE EVENT DATE: 20240502
